FAERS Safety Report 5731358-9 (Version None)
Quarter: 2008Q2

REPORT INFORMATION
  Report Type: 
  Country: None (occurrence: None)
  Receive Date: 20080508
  Receipt Date: 20080428
  Transmission Date: 20081010
  Serious: Yes (Hospitalization, Other)
  Sender: FDA-Public Use
  Company Number: GB-JNJFOC-20080407321

PATIENT
  Sex: Female
  Weight: 97 kg

DRUGS (8)
  1. REMICADE [Suspect]
     Indication: RHEUMATOID ARTHRITIS
     Route: 042
  2. LEVOTHYROXINE SODIUM [Concomitant]
  3. METHOTREXATE [Concomitant]
  4. HYDROCODEINE [Concomitant]
  5. FELODIPINE [Concomitant]
  6. FOLIC ACID [Concomitant]
  7. NAPROSYN [Concomitant]
  8. ACETAMINOPHEN [Concomitant]

REACTIONS (1)
  - GASTROOESOPHAGEAL REFLUX DISEASE [None]
